FAERS Safety Report 4765476-9 (Version None)
Quarter: 2005Q3

REPORT INFORMATION
  Report Type: 
  Country: None (occurrence: None)
  Receive Date: 20050908
  Receipt Date: 20050829
  Transmission Date: 20060218
  Serious: Yes (Other)
  Sender: FDA-Public Use
  Company Number: 2005120993

PATIENT
  Age: 50 Year
  Sex: Male
  Weight: 65 kg

DRUGS (13)
  1. ZYVOX [Suspect]
     Indication: SEPSIS
     Dosage: SEE IMAGE
     Dates: end: 20050821
  2. ZYVOX [Suspect]
     Indication: SEPSIS
     Dosage: SEE IMAGE
     Dates: start: 20050805
  3. INSULIN INSULATARD (INSULIN INJECTION, ISOPHANE) [Concomitant]
  4. AMLODIPINE [Concomitant]
  5. EUPRESSYL (URAPIDIL) [Concomitant]
  6. BISOPROLOL FUMARATE [Concomitant]
  7. ESOMEPRAZOLE MAGNESIUM (ESOMEPRAZOLE MAGNESIUM) [Concomitant]
  8. NEFOPAM HYDROCHLORIDE (NEFOPAM HYDROCHLORIDE) [Concomitant]
  9. TRAMADOL HCL [Concomitant]
  10. OXACILLIN [Concomitant]
  11. RIFADIN [Concomitant]
  12. FOSFOCINE (FOSFOMYCIN SODIUM) [Concomitant]
  13. TARGOCID [Concomitant]

REACTIONS (2)
  - ABSCESS [None]
  - VENA CAVA THROMBOSIS [None]
